FAERS Safety Report 5575764-4 (Version None)
Quarter: 2007Q4

REPORT INFORMATION
  Report Type: 
  Country: None (occurrence: None)
  Receive Date: 20071221
  Receipt Date: 20071211
  Transmission Date: 20080405
  Serious: Yes (Other)
  Sender: FDA-Public Use
  Company Number: 230004M07FIN

PATIENT
  Age: 30 Year
  Sex: Male

DRUGS (2)
  1. REBIF [Suspect]
     Indication: MULTIPLE SCLEROSIS
     Dosage: 8.8 MCG, 3 IN 1 WEEKS; 22 MCG, 3 IN 1 WEEKS
     Dates: start: 20071116, end: 20071128
  2. REBIF [Suspect]
     Indication: MULTIPLE SCLEROSIS
     Dosage: 8.8 MCG, 3 IN 1 WEEKS; 22 MCG, 3 IN 1 WEEKS
     Dates: start: 20071130, end: 20071202

REACTIONS (7)
  - ANAPHYLACTIC REACTION [None]
  - CHEST DISCOMFORT [None]
  - DRUG INEFFECTIVE [None]
  - DYSPNOEA [None]
  - PAINFUL RESPIRATION [None]
  - SENSATION OF FOREIGN BODY [None]
  - SIMILAR REACTION ON PREVIOUS EXPOSURE TO DRUG [None]
